FAERS Safety Report 18212583 (Version 1)
Quarter: 2020Q3

REPORT INFORMATION
  Report Type: Spontaneous
  Country: KR (occurrence: KR)
  Receive Date: 20200831
  Receipt Date: 20200831
  Transmission Date: 20201103
  Serious: Yes (Hospitalization)
  Sender: FDA-Public Use
  Company Number: KR-LANNETT COMPANY, INC.-KR-2020LAN000184

PATIENT
  Age: 62 Year
  Sex: Male
  Weight: 70 kg

DRUGS (4)
  1. GODEX                              /06761501/ [Concomitant]
     Indication: PRODUCT USED FOR UNKNOWN INDICATION
     Dosage: UNK
     Route: 065
     Dates: start: 20200618
  2. DANAZOL. [Suspect]
     Active Substance: DANAZOL
     Indication: MYELOFIBROSIS
     Dosage: 300 MG, BID
     Route: 048
     Dates: start: 20200618, end: 20200803
  3. DANAZOL. [Suspect]
     Active Substance: DANAZOL
     Dosage: 100 MG, BID
     Route: 048
     Dates: start: 20200618
  4. PLACEBO [Suspect]
     Active Substance: UNSPECIFIED INGREDIENT
     Indication: MYELOFIBROSIS
     Dosage: 200 MG, QD
     Route: 048
     Dates: start: 20200618, end: 20200803

REACTIONS (1)
  - Pelvic mass [Not Recovered/Not Resolved]

NARRATIVE: CASE EVENT DATE: 20200705
